FAERS Safety Report 25928813 (Version 1)
Quarter: 2025Q4

REPORT INFORMATION
  Report Type: Spontaneous
  Country: EU (occurrence: EU)
  Receive Date: 20251016
  Receipt Date: 20251016
  Transmission Date: 20260118
  Serious: Yes (Death)
  Sender: ACCORD
  Company Number: None

PATIENT
  Age: 69 Year
  Sex: Female
  Weight: 55 kg

DRUGS (13)
  1. CARBOPLATIN [Suspect]
     Active Substance: CARBOPLATIN
     Indication: Squamous cell carcinoma
     Dates: start: 20241003, end: 20241003
  2. PEMETREXED [Suspect]
     Active Substance: PEMETREXED
     Indication: Squamous cell carcinoma
     Dates: start: 20241003, end: 20241003
  3. AMIVANTAMAB [Suspect]
     Active Substance: AMIVANTAMAB
     Indication: Lung carcinoma cell type unspecified stage IV
     Dates: start: 20241003, end: 20241003
  4. AUGMENTIN [Concomitant]
     Active Substance: AMOXICILLIN\CLAVULANATE POTASSIUM
  5. BETAMETHASONE [Concomitant]
     Active Substance: BETAMETHASONE
  6. DOXYCYCLINE [Concomitant]
     Active Substance: DOXYCYCLINE
  7. METHYLPREDNISOLONE [Concomitant]
     Active Substance: METHYLPREDNISOLONE
  8. ONDANSETRON [Concomitant]
     Active Substance: ONDANSETRON
  9. ACETAMINOPHEN [Concomitant]
     Active Substance: ACETAMINOPHEN
  10. POLARAMINE [Concomitant]
     Active Substance: DEXCHLORPHENIRAMINE MALEATE
  11. XARELTO [Concomitant]
     Active Substance: RIVAROXABAN
  12. AMIVANTAMAB [Suspect]
     Active Substance: AMIVANTAMAB
     Indication: Lung carcinoma cell type unspecified stage IV
     Dates: start: 20241004, end: 20241004
  13. AMIVANTAMAB [Suspect]
     Active Substance: AMIVANTAMAB
     Indication: Lung carcinoma cell type unspecified stage IV
     Dates: start: 20241010, end: 20241010

REACTIONS (1)
  - Mucosal inflammation [Fatal]

NARRATIVE: CASE EVENT DATE: 20241004
